FAERS Safety Report 5002637-8 (Version None)
Quarter: 2006Q2

REPORT INFORMATION
  Report Type: 
  Country: None (occurrence: None)
  Receive Date: 20060510
  Receipt Date: 20060428
  Transmission Date: 20061013
  Serious: Yes (Hospitalization)
  Sender: FDA-Public Use
  Company Number: 2006EU001467

PATIENT
  Age: 35 Year
  Sex: Female

DRUGS (2)
  1. FK506 (TACROLIMUS) CAPSULE [Suspect]
     Indication: RENAL AND PANCREAS TRANSPLANT
     Dosage: 14 MG, ORAL
     Route: 048
     Dates: start: 20050112
  2. SIROLIMUS (SIROLIMUS) [Suspect]
     Indication: RENAL AND PANCREAS TRANSPLANT
     Dosage: 5 MG, ORAL
     Route: 048
     Dates: start: 20050112

REACTIONS (4)
  - ENTEROCOCCAL SEPSIS [None]
  - ESCHERICHIA SEPSIS [None]
  - PYELONEPHRITIS [None]
  - UROSEPSIS [None]
